FAERS Safety Report 9395679 (Version 1)
Quarter: 2013Q3

REPORT INFORMATION
  Report Type: Spontaneous
  Country: GB (occurrence: GB)
  Receive Date: 20130711
  Receipt Date: 20130711
  Transmission Date: 20140515
  Serious: Yes (Hospitalization)
  Sender: FDA-Public Use
  Company Number: GB-TEVA-417127ISR

PATIENT
  Age: 16 Year
  Sex: Male

DRUGS (34)
  1. DOXORUBICIN NOS [Suspect]
     Indication: SARCOMA
     Dosage: DATE OF LAST DOSE PRIOR TO SAE: 25/SEP/2011 (48 MG, TWICE)
     Route: 050
     Dates: start: 20110924
  2. DOXORUBICIN NOS [Suspect]
     Dosage: LAST DOSE PRIOR TO SAE: 05/NOV//2011 (45 MG, 1 IN 1 D)
     Route: 050
     Dates: start: 20111104
  3. DOXORUBICIN NOS [Suspect]
     Dosage: TWICE (DAY 1 AND 2) (45 MG)
     Route: 050
     Dates: start: 20111125
  4. VINCRISTINE [Suspect]
     Indication: SARCOMA
     Route: 050
     Dates: start: 20110924
  5. VINCRISTINE [Suspect]
     Dates: start: 20111125
  6. VINCRISTINE [Suspect]
     Dates: start: 20111104
  7. LYOVAC COSMEGEN [Suspect]
     Indication: SARCOMA
     Dosage: DATE OF LAST DOSE PRIOR TO SAE: 24/SEP/2011 (2 MG, ONCE)
     Route: 050
     Dates: start: 20110924
  8. LYOVAC COSMEGEN [Suspect]
     Route: 050
     Dates: start: 20111125
  9. LYOVAC COSMEGEN [Suspect]
     Route: 050
     Dates: start: 20111104
  10. BEVACIZUMAB [Suspect]
     Indication: SARCOMA
     Dosage: DATE OF LAST DOSE PRIOR TO SAE: 24/SEP/2011 (415 MG, ONCE)
     Route: 050
     Dates: start: 20110924
  11. BEVACIZUMAB [Suspect]
     Dosage: LAST DOSE PRIOR TO SAE: 04/NOV/2011 (ONCE)
     Route: 050
     Dates: start: 20111104
  12. BEVACIZUMAB [Suspect]
     Dosage: LAST DOSE PRIOR TO SAE: 25/NOV/2011 (ONCE)
     Route: 050
     Dates: start: 20111125
  13. IFOSFAMIDE [Suspect]
     Indication: SARCOMA
     Dosage: DATE OF LAST DOSE PRIOR TO SAE: 25/SEP/2011 (4800 MG, ONCE)
     Route: 050
     Dates: start: 20110925
  14. IFOSFAMIDE [Suspect]
     Dosage: LAST DOSE: 05/NOV/2011 (4500 MG DAILY)
     Route: 050
     Dates: start: 20111104
  15. IFOSFAMIDE [Suspect]
     Dosage: LAST DOSE PRIOR TO SAE:26/NOV/2011 (4.5 G, TWICE DAY 1 AND 2)
     Route: 050
     Dates: start: 20111125
  16. MESNA [Suspect]
     Indication: SARCOMA
     Dosage: DATE OF LAST DOSE PRIOR TO SAE: 05/NOV/2011 (5400 MG DAILY)
     Route: 050
  17. DOCUSATE SODIUM [Concomitant]
     Indication: PRODUCT USED FOR UNKNOWN INDICATION
     Dates: start: 20111007
  18. DOCUSATE SODIUM [Concomitant]
     Dates: start: 2011
  19. HYOSCINE [Concomitant]
     Indication: PRODUCT USED FOR UNKNOWN INDICATION
     Dosage: 1 PATCH 72
     Dates: start: 20110925
  20. HYOSCINE [Concomitant]
     Dates: start: 20111104
  21. PARACETAMOL [Concomitant]
     Indication: PRODUCT USED FOR UNKNOWN INDICATION
     Dates: start: 20111007
  22. PARACETAMOL [Concomitant]
     Dates: start: 20111120, end: 20111126
  23. MELATONIN [Concomitant]
     Indication: PRODUCT USED FOR UNKNOWN INDICATION
     Dates: start: 20110916
  24. MST CONTINUS [Concomitant]
     Indication: PRODUCT USED FOR UNKNOWN INDICATION
     Dates: start: 20110916
  25. MST CONTINUS [Concomitant]
     Dates: start: 20110921
  26. ONDANSETRON [Concomitant]
     Indication: PRODUCT USED FOR UNKNOWN INDICATION
     Dates: start: 20110928
  27. ONDANSETRON [Concomitant]
     Dates: start: 20111124, end: 20111128
  28. ONDANSETRON [Concomitant]
     Dates: start: 20111104
  29. METOCLOPRAMIDE [Concomitant]
     Indication: PRODUCT USED FOR UNKNOWN INDICATION
     Dates: start: 20110924
  30. METOCLOPRAMIDE [Concomitant]
     Dates: start: 20111120, end: 20111128
  31. OMEPRAZOLE [Concomitant]
     Indication: PRODUCT USED FOR UNKNOWN INDICATION
     Dates: start: 20111105
  32. CO-TRIMOXAZOLE [Concomitant]
     Indication: PRODUCT USED FOR UNKNOWN INDICATION
     Dates: start: 20110924
  33. NUTRITIONAL SUPPLEMENT [Concomitant]
     Indication: PRODUCT USED FOR UNKNOWN INDICATION
     Dates: start: 2011
  34. CHLORPHENIRAMINE [Concomitant]
     Indication: PRODUCT USED FOR UNKNOWN INDICATION
     Dates: start: 20111121, end: 20111122

REACTIONS (3)
  - Ingrowing nail [Recovered/Resolved]
  - Febrile neutropenia [Recovered/Resolved]
  - Epistaxis [Recovered/Resolved]
